FAERS Safety Report 5365519-8 (Version None)
Quarter: 2007Q2

REPORT INFORMATION
  Report Type: 
  Country: None (occurrence: None)
  Receive Date: 20070621
  Receipt Date: 20070614
  Transmission Date: 20071010
  Serious: Yes (Hospitalization)
  Sender: FDA-Public Use
  Company Number: A0656628A

PATIENT
  Age: 69 Year
  Sex: Female
  Weight: 122.7 kg

DRUGS (12)
  1. AVANDIA [Suspect]
     Dosage: 8MG PER DAY
     Route: 048
     Dates: start: 20030101
  2. COUMADIN [Suspect]
     Indication: DRUG USE FOR UNKNOWN INDICATION
     Route: 065
  3. STARLIX [Concomitant]
  4. DIAZEPAM [Concomitant]
  5. ALLOPURINOL [Concomitant]
  6. EVISTA [Concomitant]
  7. LIPITOR [Concomitant]
  8. FUROSEMIDE [Concomitant]
  9. NICARDIPINE HYDROCHLORIDE [Concomitant]
  10. DARVOCET [Concomitant]
  11. IRON SUPPLEMENT [Concomitant]
  12. PREMARIN [Concomitant]

REACTIONS (9)
  - ANAEMIA [None]
  - CARDIOMEGALY [None]
  - CHEST PAIN [None]
  - HAEMORRHAGE [None]
  - JOINT SWELLING [None]
  - OEDEMA [None]
  - SKIN ULCER [None]
  - WEIGHT INCREASED [None]
  - WEIGHT LOSS POOR [None]
